FAERS Safety Report 16899457 (Version 1)
Quarter: 2019Q4

REPORT INFORMATION
  Report Type: Spontaneous
  Country: US (occurrence: US)
  Receive Date: 20191009
  Receipt Date: 20191009
  Transmission Date: 20200122
  Serious: Yes (Hospitalization, Other)
  Sender: FDA-Public Use
  Company Number: US-PFIZER INC-2019428449

PATIENT
  Age: 63 Year
  Sex: Male

DRUGS (1)
  1. HEPARIN SODIUM. [Suspect]
     Active Substance: HEPARIN SODIUM
     Indication: CARDIAC VENTRICULAR THROMBOSIS
     Dosage: UNK

REACTIONS (8)
  - Abdominal pain [Unknown]
  - Tachycardia [Unknown]
  - Condition aggravated [Unknown]
  - Splenic rupture [Unknown]
  - Splenic haematoma [Unknown]
  - Hypotension [Unknown]
  - Haemoglobin decreased [Unknown]
  - Peritoneal haemorrhage [Unknown]
